FAERS Safety Report 23784415 (Version 1)
Quarter: 2024Q2

REPORT INFORMATION
  Report Type: Spontaneous
  Country: US (occurrence: None)
  Receive Date: 20240425
  Receipt Date: 20240425
  Transmission Date: 20240716
  Serious: No
  Sender: FDA-Public Use
  Company Number: None

PATIENT
  Age: 75 Year
  Sex: Female
  Weight: 70.94 kg

DRUGS (5)
  1. FLUOROURACIL [Suspect]
     Active Substance: FLUOROURACIL
  2. LEUCOVORIN CALCIUM [Suspect]
     Active Substance: LEUCOVORIN CALCIUM
  3. ELOXATIN [Suspect]
     Active Substance: OXALIPLATIN
  4. ELIQUIS [Concomitant]
  5. METOPROLOL SUCCINATE (tOPROL-xl) [Concomitant]

REACTIONS (19)
  - Anaemia [None]
  - Epistaxis [None]
  - Therapy interrupted [None]
  - Weight decreased [None]
  - Balance disorder [None]
  - Dyspnoea [None]
  - Palpitations [None]
  - Infusion related reaction [None]
  - Temperature intolerance [None]
  - Fatigue [None]
  - Sinus tachycardia [None]
  - Atrial fibrillation [None]
  - Red blood cell transfusion [None]
  - Hypotension [None]
  - Device use issue [None]
  - Atrial tachycardia [None]
  - Hypokalaemia [None]
  - Hyponatraemia [None]
  - Platelet count decreased [None]

NARRATIVE: CASE EVENT DATE: 20240403
